FAERS Safety Report 7368336-2 (Version None)
Quarter: 2011Q1

REPORT INFORMATION
  Report Type: 
  Country: None (occurrence: None)
  Receive Date: 20110311
  Receipt Date: 20110225
  Transmission Date: 20110831
  Serious: Yes (Hospitalization)
  Sender: FDA-Public Use
  Company Number: 2011MA001858

PATIENT
  Age: 32 Year
  Sex: Male

DRUGS (1)
  1. OXYCODONE AND ACETAMINOPHEN [Suspect]
     Indication: PAIN
     Dosage: 325 MG; PO
     Route: 048

REACTIONS (1)
  - HYPERAESTHESIA [None]
